FAERS Safety Report 9918727 (Version 6)
Quarter: 2016Q1

REPORT INFORMATION
  Report Type: Report from Study
  Country: CA (occurrence: CA)
  Receive Date: 20140224
  Receipt Date: 20160112
  Transmission Date: 20160526
  Serious: Yes (Death, Hospitalization, Other)
  Sender: FDA-Public Use
  Company Number: CA-ROCHE-1354317

PATIENT
  Age: 59 Year
  Sex: Female

DRUGS (17)
  1. METHOTREXATE [Concomitant]
     Active Substance: METHOTREXATE
     Route: 065
  2. VOLTAREN [Concomitant]
     Active Substance: DICLOFENAC SODIUM
  3. DICLOFENAC [Concomitant]
     Active Substance: DICLOFENAC
  4. DALTEPARIN [Concomitant]
     Active Substance: DALTEPARIN
  5. INFLIXIMAB [Concomitant]
     Active Substance: INFLIXIMAB
  6. PANTOPRAZOLE [Concomitant]
     Active Substance: PANTOPRAZOLE SODIUM
  7. TYLENOL EXTRA STRENGTH [Concomitant]
     Active Substance: ACETAMINOPHEN
  8. NYSTATIN. [Concomitant]
     Active Substance: NYSTATIN
  9. METHYLPREDNISOLONE. [Concomitant]
     Active Substance: METHYLPREDNISOLONE
     Indication: PREMEDICATION
     Route: 042
     Dates: start: 20100303, end: 20151026
  10. ARAVA [Concomitant]
     Active Substance: LEFLUNOMIDE
     Route: 065
     Dates: end: 201206
  11. ETANERCEPT [Concomitant]
     Active Substance: ETANERCEPT
  12. DIPHENHYDRAMINE HCL [Concomitant]
     Active Substance: DIPHENHYDRAMINE HYDROCHLORIDE
     Indication: PREMEDICATION
     Route: 048
     Dates: start: 20100303, end: 20151026
  13. ACETAMINOPHEN. [Concomitant]
     Active Substance: ACETAMINOPHEN
     Indication: PREMEDICATION
     Route: 048
     Dates: start: 20100303, end: 20151026
  14. HYDROMORPHONE [Concomitant]
     Active Substance: HYDROMORPHONE
  15. METOCLOPRAMIDE. [Concomitant]
     Active Substance: METOCLOPRAMIDE
  16. PREDNISONE. [Concomitant]
     Active Substance: PREDNISONE
     Route: 065
  17. RITUXAN [Suspect]
     Active Substance: RITUXIMAB
     Indication: RHEUMATOID ARTHRITIS
     Dosage: DATE OF PREVIOUS DOSE OF RITUXIMAB: 29/MAR/2013
     Route: 042
     Dates: start: 20100303, end: 20151028

REACTIONS (45)
  - Endocarditis noninfective [Fatal]
  - Pancreatic mass [Unknown]
  - Blood albumin decreased [Unknown]
  - Blood potassium decreased [Unknown]
  - White blood cell count increased [Unknown]
  - Blood lactate dehydrogenase increased [Unknown]
  - Blood urea decreased [Unknown]
  - Protein total decreased [Unknown]
  - International normalised ratio increased [Unknown]
  - Platelet count decreased [Unknown]
  - Cerebrovascular accident [Fatal]
  - Hepatic steatosis [Unknown]
  - Haemoglobin decreased [Unknown]
  - Neutrophil count increased [Unknown]
  - Blood creatinine decreased [Unknown]
  - Rheumatoid arthritis [Unknown]
  - Peripheral swelling [Not Recovered/Not Resolved]
  - Haemoglobin decreased [Unknown]
  - Pancreatic carcinoma [Fatal]
  - Weight decreased [Not Recovered/Not Resolved]
  - Haemangioma of spleen [Unknown]
  - Gamma-glutamyltransferase increased [Unknown]
  - Haematocrit decreased [Unknown]
  - Escherichia urinary tract infection [Unknown]
  - Monocyte count increased [Unknown]
  - Blood phosphorus decreased [Unknown]
  - Blood alkaline phosphatase increased [Unknown]
  - Arthralgia [Not Recovered/Not Resolved]
  - Granuloma [Fatal]
  - Cholelithiasis [Recovered/Resolved]
  - Pancreatitis [Recovered/Resolved]
  - Pancreatic carcinoma [Unknown]
  - Metastases to spleen [Unknown]
  - Metastases to spine [Unknown]
  - Amylase decreased [Unknown]
  - Red cell distribution width increased [Unknown]
  - Splenic lesion [Unknown]
  - Metastases to liver [Unknown]
  - Red blood cell count decreased [Unknown]
  - Bilirubin conjugated increased [Unknown]
  - Pain in extremity [Not Recovered/Not Resolved]
  - Gallbladder disorder [Unknown]
  - Gamma-glutamyltransferase increased [Unknown]
  - Aspartate aminotransferase increased [Unknown]
  - Blood sodium decreased [Unknown]

NARRATIVE: CASE EVENT DATE: 20140216
